FAERS Safety Report 7934530-2 (Version None)
Quarter: 2011Q4

REPORT INFORMATION
  Report Type: 
  Country: None (occurrence: None)
  Receive Date: 20111118
  Receipt Date: 20111005
  Transmission Date: 20120403
  Serious: Yes (Disabling)
  Sender: FDA-Public Use
  Company Number: 2011SP047318

PATIENT
  Age: 25 Year
  Sex: Female
  Weight: 51 kg

DRUGS (2)
  1. SAPHRIS [Suspect]
     Indication: SCHIZOPHRENIA
     Dosage: 5 MG;BID;SL
     Route: 060
     Dates: start: 20110929, end: 20110930
  2. ZYPREXA [Concomitant]

REACTIONS (2)
  - HYPOAESTHESIA ORAL [None]
  - LIP SWELLING [None]
